FAERS Safety Report 5286172-8 (Version None)
Quarter: 2007Q1

REPORT INFORMATION
  Report Type: 
  Country: None (occurrence: None)
  Receive Date: 20070116
  Receipt Date: 20061108
  Transmission Date: 20070707
  Serious: No
  Sender: FDA-Public Use
  Company Number: 2006SP003986

PATIENT
  Age: 56 Year
  Sex: Male
  Weight: 68.0396 kg

DRUGS (6)
  1. LUNESTA [Suspect]
     Indication: INSOMNIA
     Dosage: 2 MG;HS;ORAL
     Route: 048
     Dates: start: 20061101, end: 20061101
  2. TAMSULOSIN HCL [Concomitant]
  3. DIPHENHYDRAMINE HYDROCHLORIDE [Concomitant]
  4. MUSCLE RELAXANTS [Concomitant]
  5. AMITRIPTYLINE HCL [Concomitant]
  6. SEIZURE MEDICATION [Concomitant]

REACTIONS (1)
  - INITIAL INSOMNIA [None]
